FAERS Safety Report 18366355 (Version 1)
Quarter: 2020Q4

REPORT INFORMATION
  Report Type: Spontaneous
  Country: DE (occurrence: DE)
  Receive Date: 20201009
  Receipt Date: 20201009
  Transmission Date: 20210114
  Serious: Yes (Hospitalization, Other)
  Sender: FDA-Public Use
  Company Number: DE-MYLANLABS-PHBS1990DE01000

PATIENT
  Age: 41 Year
  Sex: Male

DRUGS (8)
  1. CLOZAPINE. [Interacting]
     Active Substance: CLOZAPINE
     Indication: SCHIZOPHRENIA
     Dosage: 20 MILLIGRAM, 20 MG, UNK (SEVERAL WEEKS)
  2. FLUPHENAZINE [Interacting]
     Active Substance: FLUPHENAZINE
     Indication: SCHIZOPHRENIA
     Dosage: 6 MG, UNK (SEVERAL WEEKS)
  3. CLOZAPINE. [Interacting]
     Active Substance: CLOZAPINE
     Dosage: UNK UNK, Q2D
     Route: 048
  4. CLOBAZAM. [Concomitant]
     Active Substance: CLOBAZAM
     Indication: PRODUCT USED FOR UNKNOWN INDICATION
     Dosage: UNK
  5. CLOZAPINE. [Interacting]
     Active Substance: CLOZAPINE
     Dosage: 125 MILLIGRAM, QD
  6. DIAZEPAM. [Suspect]
     Active Substance: DIAZEPAM
     Indication: SCHIZOPHRENIA
     Dosage: 2 MILLIGRAM, 2 MG, UNK (SEVERAL WEEKS)
  7. LORMETAZEPAM [Interacting]
     Active Substance: LORMETAZEPAM
     Indication: SCHIZOPHRENIA
     Dosage: 1 MG, UNK (SEVERAL WEEKS)
  8. CLOZAPINE. [Interacting]
     Active Substance: CLOZAPINE
     Dosage: UNK UNK, Q2D
     Route: 048

REACTIONS (6)
  - Circulatory collapse [Recovered/Resolved]
  - Salivary hypersecretion [Recovered/Resolved]
  - Respiratory arrest [Recovered/Resolved]
  - Drug interaction [Unknown]
  - Delirium [Recovered/Resolved]
  - Loss of consciousness [Recovered/Resolved]
